FAERS Safety Report 6903741-7 (Version None)
Quarter: 2010Q3

REPORT INFORMATION
  Report Type: 
  Country: None (occurrence: None)
  Receive Date: 20100804
  Receipt Date: 20081211
  Transmission Date: 20110219
  Serious: No
  Sender: FDA-Public Use
  Company Number: US-PFIZER INC-2008088655

PATIENT
  Sex: Female
  Weight: 68.9 kg

DRUGS (2)
  1. LYRICA [Suspect]
     Indication: FIBROMYALGIA
     Dosage: 150 MG, 2X/DAY
     Route: 048
     Dates: start: 20080730
  2. WARFARIN SODIUM [Concomitant]
     Dosage: UNK

REACTIONS (3)
  - BALANCE DISORDER [None]
  - EMOTIONAL DISORDER [None]
  - FEELING DRUNK [None]
